FAERS Safety Report 5569814-9 (Version None)
Quarter: 2007Q4

REPORT INFORMATION
  Report Type: 
  Country: None (occurrence: None)
  Receive Date: 20071218
  Receipt Date: 20071204
  Transmission Date: 20080405
  Serious: Yes (Hospitalization)
  Sender: FDA-Public Use
  Company Number: 2007S1012929

PATIENT
  Sex: Male

DRUGS (1)
  1. CYSTAGON [Suspect]
     Dosage: TRANSPLACENTAL
     Route: 064

REACTIONS (5)
  - BLOOD CREATININE INCREASED [None]
  - DRUG EXPOSURE DURING PREGNANCY [None]
  - NEONATAL DISORDER [None]
  - POLYHYDRAMNIOS [None]
  - PREMATURE BABY [None]
